FAERS Safety Report 6876536-0 (Version None)
Quarter: 2010Q3

REPORT INFORMATION
  Report Type: 
  Country: None (occurrence: None)
  Receive Date: 20100727
  Receipt Date: 20100713
  Transmission Date: 20110219
  Serious: Yes (Hospitalization)
  Sender: FDA-Public Use
  Company Number: FR-ALEXION-A200900738

PATIENT

DRUGS (3)
  1. SOLIRIS [Suspect]
     Indication: PAROXYSMAL NOCTURNAL HAEMOGLOBINURIA
     Dosage: 600 MG, QWKX4
     Route: 042
     Dates: start: 20081117, end: 20081208
  2. SOLIRIS [Suspect]
     Dosage: 900 MG, Q2WKS
     Route: 042
     Dates: start: 20081215
  3. SOLIRIS [Suspect]
     Dosage: 900 MG, Q12DAYS
     Route: 042
     Dates: start: 20091001

REACTIONS (5)
  - ABDOMINAL PAIN [None]
  - BLOOD ALKALINE PHOSPHATASE INCREASED [None]
  - BLOOD BILIRUBIN INCREASED [None]
  - GENERAL PHYSICAL HEALTH DETERIORATION [None]
  - TRANSAMINASES INCREASED [None]
